FAERS Safety Report 8936776 (Version 1)
Quarter: 2012Q4

REPORT INFORMATION
  Report Type: 
  Country: GB (occurrence: GB)
  Receive Date: 20121130
  Receipt Date: 20121130
  Transmission Date: 20130627
  Serious: Yes (Other)
  Sender: FDA-Public Use
  Company Number: GB-ASTRAZENECA-2012SE88681

PATIENT
  Age: 798 Month
  Sex: Female

DRUGS (6)
  1. ATENOLOL [Suspect]
     Indication: BLOOD PRESSURE INCREASED
     Route: 048
     Dates: start: 20121016, end: 20121023
  2. AMITRIPTYLINE [Concomitant]
  3. PARACETAMOL [Concomitant]
     Dosage: OCCASIONALLY
  4. ZOPICLONE [Concomitant]
  5. LIVIAL [Concomitant]
     Indication: HORMONE REPLACEMENT THERAPY
  6. ARTIFICIAL SALIVA, VISOTEAR [Concomitant]

REACTIONS (2)
  - Ocular icterus [Not Recovered/Not Resolved]
  - Jaundice [Not Recovered/Not Resolved]
